FAERS Safety Report 4723737-3 (Version None)
Quarter: 2005Q3

REPORT INFORMATION
  Report Type: 
  Country: None (occurrence: None)
  Receive Date: 20050725
  Receipt Date: 20050630
  Transmission Date: 20060218
  Serious: Yes (Other)
  Sender: FDA-Public Use
  Company Number: US-BRISTOL-MYERS SQUIBB COMPANY-13021498

PATIENT

DRUGS (3)
  1. DOXORUBICIN [Suspect]
     Indication: LEIOMYOSARCOMA
  2. DACARBAZINE [Suspect]
     Indication: LEIOMYOSARCOMA
  3. DOCETAXEL [Suspect]
     Indication: LEIOMYOSARCOMA

REACTIONS (1)
  - SCLERODERMA [None]
